FAERS Safety Report 10262529 (Version 1)
Quarter: 2014Q2

REPORT INFORMATION
  Report Type: Spontaneous
  Country: US (occurrence: US)
  Receive Date: 20140626
  Receipt Date: 20140626
  Transmission Date: 20141212
  Serious: Yes (Other)
  Sender: FDA-Public Use
  Company Number: US-ASTRAZENECA-2014SE45902

PATIENT
  Age: 38 Year
  Sex: Male

DRUGS (3)
  1. QUETIAPINE [Suspect]
     Route: 048
  2. BUPRENORPHINE/NALOXONE [Suspect]
     Dosage: 8 MG/2 MG  2 FILMS DAILY
     Route: 060
  3. GABAPENTIN [Suspect]

REACTIONS (3)
  - Intentional overdose [Unknown]
  - Intentional product misuse [Unknown]
  - Feeling of relaxation [Unknown]
